FAERS Safety Report 7122116-1 (Version None)
Quarter: 2010Q4

REPORT INFORMATION
  Report Type: 
  Country: None (occurrence: None)
  Receive Date: 20101122
  Receipt Date: 20101122
  Transmission Date: 20110411
  Serious: Yes (Hospitalization)
  Sender: FDA-Public Use
  Company Number: None

PATIENT
  Sex: Female
  Weight: 72.9 kg

DRUGS (2)
  1. TAXOL [Suspect]
     Dosage: 310 MG
     Dates: end: 20100930
  2. TOPOTECAN [Suspect]
     Dosage: 3.9 MG
     Dates: end: 20101002

REACTIONS (6)
  - DIZZINESS [None]
  - HEART RATE INCREASED [None]
  - MUSCULOSKELETAL PAIN [None]
  - PALPITATIONS [None]
  - PERIODONTAL INFECTION [None]
  - TACHYCARDIA [None]
